FAERS Safety Report 7173774-7 (Version None)
Quarter: 2010Q4

REPORT INFORMATION
  Report Type: 
  Country: None (occurrence: None)
  Receive Date: 20101219
  Receipt Date: 20100309
  Transmission Date: 20110411
  Serious: No
  Sender: FDA-Public Use
  Company Number: US-AMGEN-KDL398572

PATIENT

DRUGS (2)
  1. ENBREL [Suspect]
     Indication: RHEUMATOID ARTHRITIS
     Dosage: 50 MG, Q2WK
     Route: 058
     Dates: start: 20030305
  2. SULFASALAZINE [Concomitant]
     Dosage: 2000 MG, QD
     Route: 048
     Dates: start: 20020101

REACTIONS (1)
  - RHEUMATOID ARTHRITIS [None]
